FAERS Safety Report 14367325 (Version 2)
Quarter: 2018Q1

REPORT INFORMATION
  Report Type: Report from Study
  Country: None (occurrence: US)
  Receive Date: 20180109
  Receipt Date: 20180130
  Transmission Date: 20180509
  Serious: Yes (Hospitalization, Other)
  Sender: FDA-Public Use
  Company Number: US-ABBVIE-18P-163-2211865-00

PATIENT
  Age: 58 Year
  Sex: Female

DRUGS (2)
  1. VENCLEXTA [Suspect]
     Active Substance: VENETOCLAX
     Indication: PRODUCT USED FOR UNKNOWN INDICATION
     Route: 048
  2. DECITABINE. [Concomitant]
     Active Substance: DECITABINE
     Indication: PRODUCT USED FOR UNKNOWN INDICATION

REACTIONS (4)
  - Blood count abnormal [Not Recovered/Not Resolved]
  - Blood product transfusion dependent [Not Recovered/Not Resolved]
  - Drug dose omission [Unknown]
  - Platelet count decreased [Not Recovered/Not Resolved]

NARRATIVE: CASE EVENT DATE: 20180103
